FAERS Safety Report 6114685-5 (Version None)
Quarter: 2009Q1

REPORT INFORMATION
  Report Type: 
  Country: None (occurrence: None)
  Receive Date: 20090313
  Receipt Date: 20090302
  Transmission Date: 20090719
  Serious: Yes (Hospitalization)
  Sender: FDA-Public Use
  Company Number: FR-NOVOPROD-283276

PATIENT
  Age: 56 Year
  Sex: Male
  Weight: 63.9 kg

DRUGS (16)
  1. LEVEMIR [Suspect]
     Indication: TYPE 1 DIABETES MELLITUS
     Dosage: ONE UNKNOWN DOSE
     Route: 058
     Dates: start: 20081105, end: 20081105
  2. VISIPAQUE [Suspect]
     Indication: DRUG USE FOR UNKNOWN INDICATION
     Dosage: SINGLE DOSE
     Route: 042
     Dates: start: 20081004, end: 20081004
  3. LASIX [Suspect]
     Indication: DRUG USE FOR UNKNOWN INDICATION
     Dosage: 20MG/2ML
     Dates: start: 20081023, end: 20081105
  4. BENERVA [Suspect]
     Indication: DRUG USE FOR UNKNOWN INDICATION
     Dosage: UNKNOWN
     Route: 048
     Dates: end: 20081106
  5. BECILAN [Suspect]
     Indication: DRUG USE FOR UNKNOWN INDICATION
     Dosage: 250 MG, UNK
     Route: 048
     Dates: end: 20081106
  6. POTASSIUM CHLORIDE [Suspect]
     Indication: DRUG USE FOR UNKNOWN INDICATION
     Dosage: (POTASSIUM RICHARD) UNKNOWN
     Dates: start: 20081028, end: 20081105
  7. HALDOL [Suspect]
     Indication: DRUG USE FOR UNKNOWN INDICATION
     Dosage: 2MG/ML
     Route: 048
     Dates: end: 20081106
  8. SECTRAL [Concomitant]
     Dosage: 400 MG, QD
     Route: 048
  9. DOXIUM [Concomitant]
     Dosage: 500 MG, QD
  10. PLAVIX [Concomitant]
     Dosage: 75 MG, QD
  11. AMLOR [Concomitant]
     Dosage: 10 MG, QD
  12. TAHOR [Concomitant]
     Dosage: 1 TAB, QD
  13. INEXIUM                            /01479302/ [Concomitant]
     Dosage: 20 MG, QD
  14. ZESTORETIC [Concomitant]
     Dosage: 32.5 MG, QD
  15. LANTUS [Concomitant]
     Dosage: 10 U, QD
  16. NOVORAPID [Concomitant]

REACTIONS (4)
  - DERMATITIS EXFOLIATIVE [None]
  - FEELING COLD [None]
  - GENERALISED ERYTHEMA [None]
  - HYPOTENSION [None]
